FAERS Safety Report 25955729 (Version 1)
Quarter: 2025Q4

REPORT INFORMATION
  Report Type: Spontaneous
  Country: US (occurrence: US)
  Receive Date: 20251024
  Receipt Date: 20251024
  Transmission Date: 20260117
  Serious: Yes (Other)
  Sender: RADIUS PHARM
  Company Number: US-RADIUS HEALTH INC.-US-RADIUS-25055760

PATIENT
  Sex: Female

DRUGS (1)
  1. TYMLOS [Suspect]
     Active Substance: ABALOPARATIDE
     Indication: Product used for unknown indication
     Dosage: 80 MICROGRAM, QD
     Route: 058

REACTIONS (15)
  - Inflammatory bowel disease [Recovered/Resolved]
  - Condition aggravated [Recovered/Resolved]
  - Heart rate increased [Recovering/Resolving]
  - Eye pain [Recovering/Resolving]
  - Toothache [Recovering/Resolving]
  - Migraine [Recovering/Resolving]
  - Eructation [Recovering/Resolving]
  - Influenza like illness [Recovering/Resolving]
  - Pyrexia [Recovering/Resolving]
  - Decreased appetite [Recovering/Resolving]
  - Blood pressure increased [Recovering/Resolving]
  - Headache [Recovering/Resolving]
  - Back pain [Recovering/Resolving]
  - Pain [Recovering/Resolving]
  - Insomnia [Recovering/Resolving]
